FAERS Safety Report 15121308 (Version 1)
Quarter: 2018Q3

REPORT INFORMATION
  Report Type: Spontaneous
  Country: AR (occurrence: AR)
  Receive Date: 20180709
  Receipt Date: 20180709
  Transmission Date: 20181010
  Serious: Yes (Hospitalization, Other)
  Sender: FDA-Public Use
  Company Number: AR-GILEAD-2018-0347961

PATIENT
  Age: 47 Year
  Sex: Male

DRUGS (5)
  1. HARVONI [Suspect]
     Active Substance: LEDIPASVIR\SOFOSBUVIR
     Indication: CHRONIC HEPATITIS C
     Dosage: 1 DF, UNK
     Route: 048
     Dates: start: 20180518
  2. LAMIVUDINE. [Concomitant]
     Active Substance: LAMIVUDINE
  3. TENOFOVIR [Concomitant]
     Active Substance: TENOFOVIR
  4. RIBAVIRIN. [Suspect]
     Active Substance: RIBAVIRIN
     Indication: CHRONIC HEPATITIS C
     Dosage: UNK
     Route: 065
     Dates: start: 20180518
  5. ATAZANAVIR SULFATE + RITONAVIR [Concomitant]
     Active Substance: ATAZANAVIR SULFATE\RITONAVIR

REACTIONS (8)
  - Jaundice [Recovering/Resolving]
  - Ascites [Unknown]
  - Vomiting [Recovered/Resolved]
  - Blood bilirubin increased [Recovering/Resolving]
  - Decreased appetite [Unknown]
  - Oedema peripheral [Unknown]
  - Prothrombin level increased [Recovering/Resolving]
  - Nausea [Recovered/Resolved]

NARRATIVE: CASE EVENT DATE: 201805
